FAERS Safety Report 6410972-1 (Version None)
Quarter: 2009Q4

REPORT INFORMATION
  Report Type: 
  Country: None (occurrence: None)
  Receive Date: 20091020
  Receipt Date: 20091020
  Transmission Date: 20100525
  Serious: Yes (Disabling)
  Sender: FDA-Public Use
  Company Number: None

PATIENT
  Age: 83 Year
  Sex: Male
  Weight: 70.7611 kg

DRUGS (2)
  1. LEVAQUIN [Suspect]
     Indication: PNEUMONIA
     Dates: start: 20081129, end: 20081202
  2. LEVAQUIN [Suspect]
     Indication: PNEUMONIA
     Dates: start: 20090923, end: 20090925

REACTIONS (3)
  - CONVULSION [None]
  - ROTATOR CUFF SYNDROME [None]
  - TENDON RUPTURE [None]
